FAERS Safety Report 17614860 (Version 1)
Quarter: 2020Q2

REPORT INFORMATION
  Report Type: Report from Study
  Country: CA (occurrence: CA)
  Receive Date: 20200402
  Receipt Date: 20200402
  Transmission Date: 20200713
  Serious: Yes (Other)
  Sender: FDA-Public Use
  Company Number: CA-TEVA-2020-CA-1217571

PATIENT
  Age: 46 Year
  Sex: Female

DRUGS (5)
  1. COPAXONE [Suspect]
     Active Substance: GLATIRAMER ACETATE
     Indication: MULTIPLE SCLEROSIS
     Dates: start: 20190220
  2. OMEGA 3 COMPLEX-PRN [Concomitant]
  3. VITAMIN D [Concomitant]
     Active Substance: VITAMIN D NOS
  4. ADVIL-PRN [Concomitant]
  5. TYLENOL- PRN [Concomitant]

REACTIONS (7)
  - Erythema [Unknown]
  - Pruritus [Unknown]
  - Injection site haemorrhage [Unknown]
  - Erythema [Not Recovered/Not Resolved]
  - Anaphylactic shock [Unknown]
  - Presyncope [Unknown]
  - Peripheral swelling [Recovering/Resolving]

NARRATIVE: CASE EVENT DATE: 20200329
